FAERS Safety Report 6180869-3 (Version None)
Quarter: 2009Q2

REPORT INFORMATION
  Report Type: 
  Country: None (occurrence: None)
  Receive Date: 20090504
  Receipt Date: 20090504
  Transmission Date: 20091009
  Serious: Yes (Other)
  Sender: FDA-Public Use
  Company Number: None

PATIENT
  Sex: Female
  Weight: 28.5766 kg

DRUGS (4)
  1. CETIRIZINE HYDROCHLORIDE ALLERGY [Suspect]
     Indication: SEASONAL ALLERGY
     Dosage: 1 TSP 24 HRS PO
     Route: 048
     Dates: start: 20090420, end: 20090420
  2. CETIRIZINE HYDROCHLORIDE ALLERGY [Suspect]
     Indication: SNEEZING
     Dosage: 1 TSP 24 HRS PO
     Route: 048
     Dates: start: 20090420, end: 20090420
  3. CETIRIZINE HYDROCHLORIDE ALLERGY [Suspect]
     Indication: SEASONAL ALLERGY
     Dosage: 1 TSP 24 HRS PO
     Route: 048
     Dates: start: 20090502, end: 20090502
  4. CETIRIZINE HYDROCHLORIDE ALLERGY [Suspect]
     Indication: SNEEZING
     Dosage: 1 TSP 24 HRS PO
     Route: 048
     Dates: start: 20090502, end: 20090502

REACTIONS (2)
  - ABASIA [None]
  - PAIN IN EXTREMITY [None]
